FAERS Safety Report 9015652 (Version 1)
Quarter: 2013Q1

REPORT INFORMATION
  Report Type: Spontaneous
  Country: VE (occurrence: VE)
  Receive Date: 20130116
  Receipt Date: 20130116
  Transmission Date: 20140127
  Serious: Yes (Hospitalization, Other)
  Sender: FDA-Public Use
  Company Number: VE-ROCHE-GNE320595

PATIENT
  Sex: Female

DRUGS (7)
  1. XOLAIR [Suspect]
     Indication: ASTHMA
     Route: 065
  2. METFORMIN [Concomitant]
     Indication: PRODUCT USED FOR UNKNOWN INDICATION
  3. FORADIL [Concomitant]
     Indication: PRODUCT USED FOR UNKNOWN INDICATION
  4. VANNAIR [Concomitant]
     Route: 065
  5. LORATADINA [Concomitant]
     Indication: HYPERSENSITIVITY
     Route: 048
  6. MIFLONIDE [Concomitant]
  7. MONTELUKAST SODIUM [Concomitant]
     Indication: ASTHMA
     Route: 048

REACTIONS (2)
  - Asthmatic crisis [Recovered/Resolved]
  - Nasal turbinate hypertrophy [Unknown]
